FAERS Safety Report 7709568-0 (Version None)
Quarter: 2011Q3

REPORT INFORMATION
  Report Type: 
  Country: None (occurrence: None)
  Receive Date: 20110825
  Receipt Date: 20110817
  Transmission Date: 20111222
  Serious: Yes (Hospitalization)
  Sender: FDA-Public Use
  Company Number: US-BAYER-2011-023500

PATIENT
  Age: 28 Year
  Sex: Female
  Weight: 61.224 kg

DRUGS (5)
  1. YAZ [Suspect]
     Indication: CONTRACEPTION
     Dosage: UNK
     Dates: start: 20070601, end: 20071201
  2. HYDROCODONE BITARTRATE AND ACETAMINOPHEN [Concomitant]
     Dosage: 7.5 MG/750 MG
  3. DICYCLOMINE [Concomitant]
     Dosage: 10 MG, UNK
  4. PROMETHAZINE [Concomitant]
     Dosage: 25 MG, UNK
  5. RANITIDINE [Concomitant]
     Dosage: 150 MG, UNK

REACTIONS (13)
  - GALLBLADDER DISORDER [None]
  - CHOLELITHIASIS [None]
  - DEPRESSION [None]
  - CONSTIPATION [None]
  - DIARRHOEA [None]
  - ANXIETY [None]
  - INJURY [None]
  - GASTROINTESTINAL DISORDER [None]
  - DYSPEPSIA [None]
  - PAIN [None]
  - SCAR [None]
  - CHOLECYSTITIS ACUTE [None]
  - ABDOMINAL DISTENSION [None]
